FAERS Safety Report 12495341 (Version 1)
Quarter: 2016Q2

REPORT INFORMATION
  Report Type: Spontaneous
  Country: GB (occurrence: GB)
  Receive Date: 20160624
  Receipt Date: 20160624
  Transmission Date: 20160815
  Serious: Yes (Other)
  Sender: FDA-Public Use
  Company Number: GB-BAYER-2016-069503

PATIENT
  Age: 61 Year
  Sex: Female

DRUGS (1)
  1. STIVARGA [Suspect]
     Active Substance: REGORAFENIB
     Indication: COLORECTAL CANCER METASTATIC
     Dosage: 40 MG,
     Route: 048

REACTIONS (21)
  - Abdominal pain upper [None]
  - Blood bilirubin increased [None]
  - Insomnia [Not Recovered/Not Resolved]
  - Neuropathy peripheral [Not Recovered/Not Resolved]
  - Dyspnoea exertional [Not Recovered/Not Resolved]
  - Dry skin [None]
  - Abdominal pain [Not Recovered/Not Resolved]
  - Vomiting [None]
  - Fluid retention [None]
  - Back pain [Not Recovered/Not Resolved]
  - Metastases to liver [None]
  - Nausea [None]
  - Fatigue [None]
  - Colorectal cancer metastatic [None]
  - Constipation [None]
  - Appetite disorder [Not Recovered/Not Resolved]
  - Tongue coated [Not Recovered/Not Resolved]
  - Diarrhoea [None]
  - Paraesthesia [Not Recovered/Not Resolved]
  - Asthenia [Recovering/Resolving]
  - Intervertebral disc protrusion [Not Recovered/Not Resolved]
